FAERS Safety Report 9265897 (Version 1)
Quarter: 2013Q2

REPORT INFORMATION
  Report Type: Report from Study
  Country: US (occurrence: US)
  Receive Date: 20130501
  Receipt Date: 20130501
  Transmission Date: 20140414
  Serious: Yes (Hospitalization)
  Sender: FDA-Public Use
  Company Number: US-US-EMD SERONO, INC.-7207791

PATIENT
  Sex: Male

DRUGS (1)
  1. REBIF [Suspect]
     Indication: PRODUCT USED FOR UNKNOWN INDICATION
     Route: 058
     Dates: start: 20100823

REACTIONS (5)
  - Post procedural complication [Recovering/Resolving]
  - Sensory disturbance [Recovering/Resolving]
  - Feeling abnormal [Recovering/Resolving]
  - Feeling jittery [Recovering/Resolving]
  - Gait disturbance [Recovering/Resolving]
